FAERS Safety Report 9174420 (Version 1)
Quarter: 2013Q1

REPORT INFORMATION
  Report Type: Spontaneous
  Country: US (occurrence: US)
  Receive Date: 20130320
  Receipt Date: 20130320
  Transmission Date: 20140127
  Serious: No
  Sender: FDA-Public Use
  Company Number: US-MYLANLABS-2012S1004466

PATIENT
  Age: 62 Year
  Sex: Female

DRUGS (4)
  1. ESTRADIOL TRANSDERMAL SYSTEM, USP [Suspect]
     Indication: MENOPAUSE
     Dosage: CHANGES EVERY WEEK
     Route: 062
     Dates: start: 201110, end: 201202
  2. SYNTHROID [Concomitant]
  3. HYDROCHLOROTHIAZIDE [Concomitant]
  4. PROMETRIUM /00110701/ [Concomitant]

REACTIONS (4)
  - Application site erythema [Recovering/Resolving]
  - Application site pruritus [Recovering/Resolving]
  - Application site rash [Recovering/Resolving]
  - Pain [Recovered/Resolved]
